FAERS Safety Report 11495752 (Version 1)
Quarter: 2015Q3

REPORT INFORMATION
  Report Type: Spontaneous
  Country: AU (occurrence: AU)
  Receive Date: 20150911
  Receipt Date: 20150911
  Transmission Date: 20151125
  Serious: Yes (Hospitalization, Other)
  Sender: FDA-Public Use
  Company Number: AU-PFIZER INC-2015304859

PATIENT
  Age: 2 Day
  Sex: Male
  Weight: 4.3 kg

DRUGS (2)
  1. PHENYTOIN. [Suspect]
     Active Substance: PHENYTOIN
     Indication: EPILEPSY
     Dosage: UNK
     Route: 064
  2. PHENOBARBITONE [Suspect]
     Active Substance: PHENOBARBITAL
     Indication: EPILEPSY
     Dosage: UNK
     Route: 064

REACTIONS (6)
  - Haematemesis [Recovered/Resolved]
  - Maternal exposure during pregnancy [Unknown]
  - Blood thromboplastin abnormal [Unknown]
  - Intra-abdominal haematoma [Recovered/Resolved]
  - Prothrombin time prolonged [Unknown]
  - Haematochezia [Recovered/Resolved]
